FAERS Safety Report 6004199-5 (Version None)
Quarter: 2008Q4

REPORT INFORMATION
  Report Type: 
  Country: None (occurrence: None)
  Receive Date: 20081216
  Receipt Date: 20081204
  Transmission Date: 20090506
  Serious: Yes (Hospitalization)
  Sender: FDA-Public Use
  Company Number: US-BIOGENIDEC-192719

PATIENT
  Age: 50 Year
  Sex: Female

DRUGS (2)
  1. AVONEX [Suspect]
     Indication: MULTIPLE SCLEROSIS
     Route: 030
     Dates: start: 20030401, end: 20030101
  2. AVONEX [Suspect]
     Route: 030
     Dates: start: 20040201

REACTIONS (3)
  - ANAEMIA [None]
  - HYSTERECTOMY [None]
  - INFLUENZA LIKE ILLNESS [None]
